FAERS Safety Report 20563886 (Version 1)
Quarter: 2022Q1

REPORT INFORMATION
  Report Type: Spontaneous
  Country: DE (occurrence: DE)
  Receive Date: 20220308
  Receipt Date: 20220308
  Transmission Date: 20220423
  Serious: No
  Sender: FDA-Public Use
  Company Number: DE-ALKEM LABORATORIES LIMITED-DE-ALKEM-2021-08180

PATIENT
  Age: 76 Year
  Sex: Male

DRUGS (17)
  1. CINACALCET [Suspect]
     Active Substance: CINACALCET
     Indication: Hyperparathyroidism secondary
     Dosage: UNK
     Route: 048
  2. ALLOPURINOL [Concomitant]
     Active Substance: ALLOPURINOL
     Indication: Product used for unknown indication
     Dosage: 1000 MILLIGRAM
     Route: 048
     Dates: start: 20160415, end: 20190405
  3. CALCITRIOL [Concomitant]
     Active Substance: CALCITRIOL
     Indication: Product used for unknown indication
     Dosage: 0.5 MICROGRAM
     Route: 048
     Dates: start: 20171016, end: 20190405
  4. CARVEDILOL [Concomitant]
     Active Substance: CARVEDILOL
     Indication: Product used for unknown indication
     Dosage: 25 MILLIGRAM
     Route: 048
     Dates: start: 20181005, end: 20190405
  5. CEFACLOR [Concomitant]
     Active Substance: CEFACLOR
     Indication: Product used for unknown indication
     Dosage: 100 MILLIGRAM
     Route: 048
     Dates: start: 20180119, end: 20190405
  6. CHOLECALCIFEROL [Concomitant]
     Active Substance: CHOLECALCIFEROL
     Indication: Product used for unknown indication
     Dosage: 20000 INTERNATIONAL UNIT
     Route: 048
     Dates: start: 20140509, end: 20190405
  7. DIGOXIN [Concomitant]
     Active Substance: DIGOXIN
     Indication: Product used for unknown indication
     Dosage: 0.07 MILLIGRAM
     Route: 048
     Dates: start: 20180817, end: 20190405
  8. DREISAVIT N [Concomitant]
     Indication: Product used for unknown indication
     Dosage: UNK
     Route: 065
     Dates: start: 20180207, end: 20190405
  9. IRBESARTAN [Concomitant]
     Active Substance: IRBESARTAN
     Indication: Product used for unknown indication
     Dosage: 75 MILLIGRAM
     Route: 048
     Dates: start: 20180409, end: 20190405
  10. MARCUMAR [Concomitant]
     Active Substance: PHENPROCOUMON
     Indication: Product used for unknown indication
     Dosage: 1.5 MILLIGRAM
     Route: 048
     Dates: start: 20130729, end: 20190405
  11. CALCIUM ACETATE\MAGNESIUM CARBONATE [Concomitant]
     Active Substance: CALCIUM ACETATE\MAGNESIUM CARBONATE
     Indication: Product used for unknown indication
     Dosage: 435 MILLIGRAM
     Route: 048
     Dates: start: 20181001, end: 20190405
  12. PANTOPRAZOLE [Concomitant]
     Active Substance: PANTOPRAZOLE
     Indication: Product used for unknown indication
     Dosage: 20 MILLIGRAM
     Route: 048
     Dates: start: 20160429, end: 20190405
  13. SIMVASTATIN [Concomitant]
     Active Substance: SIMVASTATIN
     Indication: Product used for unknown indication
     Dosage: 20 MILLIGRAM
     Route: 048
     Dates: start: 20180207, end: 20190405
  14. SEVEMED [Concomitant]
     Indication: Product used for unknown indication
     Dosage: 800 MILLIGRAM
     Route: 048
     Dates: start: 20181001, end: 20190405
  15. TORSEMIDE [Concomitant]
     Active Substance: TORSEMIDE
     Indication: Product used for unknown indication
     Dosage: 200 MILLIGRAM
     Route: 048
     Dates: start: 20180409, end: 20190405
  16. GLYCOPYRRONIUM\INDACATEROL [Concomitant]
     Active Substance: GLYCOPYRRONIUM\INDACATEROL
     Indication: Product used for unknown indication
     Dosage: UNK
     Route: 048
     Dates: start: 20180410, end: 20190405
  17. XIPAMIDE [Concomitant]
     Active Substance: XIPAMIDE
     Indication: Product used for unknown indication
     Dosage: 20 MILLIGRAM
     Route: 048
     Dates: start: 20180409, end: 20190405

REACTIONS (1)
  - Vomiting [Unknown]

NARRATIVE: CASE EVENT DATE: 20190215
